FAERS Safety Report 10336061 (Version 1)
Quarter: 2014Q3

REPORT INFORMATION
  Report Type: Spontaneous
  Country: US (occurrence: US)
  Receive Date: 20140723
  Receipt Date: 20140723
  Transmission Date: 20150326
  Serious: No
  Sender: FDA-Public Use
  Company Number: US-BRISTOL-MYERS SQUIBB COMPANY-19606144

PATIENT
  Age: 72 Year
  Sex: Female
  Weight: 55.33 kg

DRUGS (12)
  1. COUMADIN [Suspect]
     Active Substance: WARFARIN SODIUM
     Indication: ARTERIAL STENOSIS
     Dosage: LAST DOSE WAS 9:30/10:30 LAST NIGHT
     Dates: start: 2006
  2. IMDUR [Concomitant]
     Active Substance: ISOSORBIDE MONONITRATE
  3. ISOSORBIDE [Concomitant]
     Active Substance: ISOSORBIDE
  4. NORVASC [Concomitant]
     Active Substance: AMLODIPINE BESYLATE
  5. LEXAPRO [Concomitant]
     Active Substance: ESCITALOPRAM OXALATE
  6. PLAVIX [Suspect]
     Active Substance: CLOPIDOGREL BISULFATE
  7. LISINOPRIL. [Concomitant]
     Active Substance: LISINOPRIL
  8. LESCOL [Concomitant]
     Active Substance: FLUVASTATIN SODIUM
  9. TOPROL XL [Concomitant]
     Active Substance: METOPROLOL SUCCINATE
  10. PROTONIX [Concomitant]
     Active Substance: PANTOPRAZOLE SODIUM
  11. METHIMAZOLE. [Concomitant]
     Active Substance: METHIMAZOLE
  12. XANAX [Concomitant]
     Active Substance: ALPRAZOLAM

REACTIONS (6)
  - Myalgia [Unknown]
  - Goitre [Unknown]
  - Contusion [Unknown]
  - Thyroid adenoma [Unknown]
  - Pain in extremity [Unknown]
  - Irritable bowel syndrome [Unknown]
